FAERS Safety Report 15967762 (Version 1)
Quarter: 2019Q1

REPORT INFORMATION
  Report Type: Spontaneous
  Country: US (occurrence: US)
  Receive Date: 20190215
  Receipt Date: 20190215
  Transmission Date: 20190418
  Serious: No
  Sender: FDA-Public Use
  Company Number: US-PERRIGO-18US007755

PATIENT
  Age: 83 Year
  Sex: Male
  Weight: 69.84 kg

DRUGS (1)
  1. CETIRIZINE HYDROCHLORIDE. [Suspect]
     Active Substance: CETIRIZINE HYDROCHLORIDE
     Indication: NASAL CONGESTION
     Dosage: 10 MG, SINGLE
     Route: 048
     Dates: start: 20180730, end: 20180730

REACTIONS (3)
  - Drug ineffective for unapproved indication [Recovered/Resolved]
  - Product administered to patient of inappropriate age [Recovered/Resolved]
  - Expired product administered [Recovered/Resolved]

NARRATIVE: CASE EVENT DATE: 20180730
